FAERS Safety Report 8002020-7 (Version None)
Quarter: 2011Q4

REPORT INFORMATION
  Report Type: 
  Country: None (occurrence: None)
  Receive Date: 20111220
  Receipt Date: 20111209
  Transmission Date: 20120403
  Serious: Yes (Death, Life-Threatening)
  Sender: FDA-Public Use
  Company Number: 2011S1000387

PATIENT
  Age: 12 Day
  Sex: Male

DRUGS (9)
  1. DOBUTAMINE HCL [Concomitant]
  2. GENTAMICIN [Concomitant]
  3. INOMAX [Suspect]
     Indication: PULMONARY HYPERTENSION
     Dosage: 20 PPM;CONT;INH, 20 PPM;CONT;INH
     Route: 055
     Dates: start: 20111013, end: 20111025
  4. INOMAX [Suspect]
     Indication: PULMONARY HYPERTENSION
     Dosage: 20 PPM;CONT;INH, 20 PPM;CONT;INH
     Route: 055
     Dates: start: 20111025, end: 20111027
  5. AMPICILLIN [Concomitant]
  6. VANCOMYCIN HYCHLORIDE [Concomitant]
  7. CEFTIN [Concomitant]
  8. DOPAMINE HCL [Concomitant]
  9. ANTIFUNGALS [Concomitant]

REACTIONS (6)
  - ENDOCARDITIS [None]
  - CARDIO-RESPIRATORY ARREST [None]
  - PULMONARY HYPERTENSION [None]
  - STAPHYLOCOCCUS TEST POSITIVE [None]
  - ACIDOSIS [None]
  - SEPSIS NEONATAL [None]
